FAERS Safety Report 8355801-4 (Version None)
Quarter: 2012Q2

REPORT INFORMATION
  Report Type: 
  Country: None (occurrence: None)
  Receive Date: 20120514
  Receipt Date: 20120509
  Transmission Date: 20120825
  Serious: No
  Sender: FDA-Public Use
  Company Number: US-PFIZER INC-2012113834

PATIENT
  Sex: Female

DRUGS (2)
  1. NITROSTAT [Suspect]
     Dosage: 0.4 MG, AS NEEDED
  2. NITROSTAT [Suspect]
     Dosage: UNK
     Dates: start: 20100101

REACTIONS (1)
  - DRUG INEFFECTIVE [None]
